FAERS Safety Report 9869295 (Version 1)
Quarter: 2014Q1

REPORT INFORMATION
  Report Type: Report from Study
  Country: DE (occurrence: DE)
  Receive Date: 20140205
  Receipt Date: 20140205
  Transmission Date: 20141002
  Serious: Yes (Hospitalization)
  Sender: FDA-Public Use
  Company Number: DE-ROCHE-1339849

PATIENT
  Age: 61 Year
  Sex: Female
  Weight: 71 kg

DRUGS (7)
  1. PERTUZUMAB [Suspect]
     Indication: OVARIAN CANCER
     Dosage: LOADING DOSE
     Route: 042
     Dates: start: 20131219, end: 20131219
  2. PERTUZUMAB [Suspect]
     Dosage: MAINTENANCE DOSE, LAST DOSE (420) TAKEN PRIOR TO SAE 08/JAN/2014
     Route: 042
  3. GEMCITABINE [Suspect]
     Indication: OVARIAN CANCER
     Dosage: LAST DOSE TAKEN PRIOR TO SAE 08/JAN/2014
     Route: 042
     Dates: start: 20131219
  4. OMEPRAZOL [Concomitant]
     Route: 065
     Dates: start: 2007
  5. METFORMIN [Concomitant]
     Route: 065
     Dates: start: 2004
  6. RAMIPRIL [Concomitant]
     Route: 065
     Dates: start: 2006
  7. METOHEXAL (GERMANY) [Concomitant]

REACTIONS (1)
  - Angina pectoris [Recovered/Resolved]
